FAERS Safety Report 7041198-9 (Version None)
Quarter: 2010Q4

REPORT INFORMATION
  Report Type: 
  Country: None (occurrence: None)
  Receive Date: 20101013
  Receipt Date: 20101004
  Transmission Date: 20110411
  Serious: Yes (Hospitalization, Other)
  Sender: FDA-Public Use
  Company Number: CH-BAYER-201041538GPV

PATIENT
  Age: 74 Year
  Sex: Male

DRUGS (12)
  1. AVELOX [Suspect]
     Indication: SKIN INFECTION
     Dosage: TOTAL DAILY DOSE: 400 MG  UNIT DOSE: 400 MG
     Route: 048
     Dates: start: 20100820, end: 20100906
  2. PANTOPRAZOLE SODIUM [Suspect]
     Indication: HAEMATEMESIS
     Dosage: TOTAL DAILY DOSE: 40 MG
     Route: 048
     Dates: start: 20100201
  3. COLCHICINE [Suspect]
     Indication: VASCULITIS
     Dosage: TOTAL DAILY DOSE: 0.5 MG
     Route: 048
     Dates: start: 20100825, end: 20100915
  4. ZOLDORM [Concomitant]
     Indication: INSOMNIA
     Dosage: IRREGULAR, LONG TERM
     Route: 048
  5. ACETAMINOPHEN [Concomitant]
     Indication: PAIN
     Dosage: TOTAL DAILY DOSE: 4000 MG
     Route: 048
     Dates: end: 20100801
  6. TRAMADOL HCL [Concomitant]
     Indication: PAIN
     Dosage: TOTAL DAILY DOSE: 150 MG
     Route: 048
     Dates: start: 20100801
  7. PREDNISONE [Concomitant]
     Indication: VASCULITIS
     Dosage: TOTAL DAILY DOSE: 50 MG
     Route: 048
     Dates: start: 20100901
  8. AMLODIPINE [Concomitant]
     Dosage: TOTAL DAILY DOSE: 10 MG
     Route: 048
     Dates: start: 20100916
  9. FUCICORT [Concomitant]
     Route: 061
     Dates: start: 20100801
  10. DIPROSALIC [Concomitant]
     Indication: ECZEMA
     Dosage: LONG TERM
  11. ASPIRIN [Concomitant]
     Indication: DIPLOPIA
  12. SIMVASTATIN [Concomitant]
     Indication: DIPLOPIA

REACTIONS (7)
  - DIPLOPIA [None]
  - GLOMERULONEPHRITIS [None]
  - HAEMATURIA [None]
  - HYPOAESTHESIA ORAL [None]
  - PROTEINURIA [None]
  - RENAL FAILURE ACUTE [None]
  - VASCULITIS [None]
